FAERS Safety Report 21664949 (Version 1)
Quarter: 2022Q4

REPORT INFORMATION
  Report Type: Spontaneous
  Country: US (occurrence: US)
  Receive Date: 20221130
  Receipt Date: 20221130
  Transmission Date: 20230113
  Serious: Yes (Other)
  Sender: FDA-Public Use
  Company Number: US-JNJFOC-20221162446

PATIENT
  Age: 4 Decade

DRUGS (9)
  1. DARZALEX [Suspect]
     Active Substance: DARATUMUMAB
     Indication: Plasma cell myeloma
     Dosage: CYCLE 1
     Route: 065
     Dates: start: 20220322
  2. DARZALEX [Suspect]
     Active Substance: DARATUMUMAB
     Dosage: CYCLE 2
     Route: 065
     Dates: start: 20220419
  3. DARZALEX [Suspect]
     Active Substance: DARATUMUMAB
     Dosage: CYCLE 3
     Route: 065
     Dates: start: 20220517, end: 20220628
  4. CARFILZOMIB [Suspect]
     Active Substance: CARFILZOMIB
     Indication: Plasma cell myeloma
     Dosage: CYCLE 1
     Route: 065
     Dates: start: 20220322
  5. CARFILZOMIB [Suspect]
     Active Substance: CARFILZOMIB
     Dosage: CYCLE 2
     Route: 065
     Dates: start: 20220419
  6. CARFILZOMIB [Suspect]
     Active Substance: CARFILZOMIB
     Dosage: CYCLE 3
     Route: 065
     Dates: start: 20220517, end: 20220628
  7. DEXAMETHASONE [Suspect]
     Active Substance: DEXAMETHASONE
     Indication: Plasma cell myeloma
     Dosage: CYCLE 1
     Route: 065
     Dates: start: 20220322
  8. DEXAMETHASONE [Suspect]
     Active Substance: DEXAMETHASONE
     Dosage: CYCLE 2
     Route: 065
     Dates: start: 20220419
  9. DEXAMETHASONE [Suspect]
     Active Substance: DEXAMETHASONE
     Dosage: CYCLE 3
     Route: 065
     Dates: start: 20220517, end: 20220628

REACTIONS (1)
  - Plasma cell myeloma [Unknown]

NARRATIVE: CASE EVENT DATE: 20220101
